FAERS Safety Report 21595611 (Version 2)
Quarter: 2023Q2

REPORT INFORMATION
  Report Type: Report from Study
  Country: ES (occurrence: ES)
  Receive Date: 20221115
  Receipt Date: 20230516
  Transmission Date: 20230722
  Serious: Yes (Hospitalization)
  Sender: FDA-Public Use
  Company Number: ES-ABBVIE-4196215

PATIENT
  Age: 78 Year
  Sex: Female
  Weight: 49 kg

DRUGS (3)
  1. CARBIDOPA\LEVODOPA [Suspect]
     Active Substance: CARBIDOPA\LEVODOPA
     Indication: Parkinson^s disease
     Route: 050
     Dates: start: 202211
  2. CARBIDOPA\LEVODOPA [Suspect]
     Active Substance: CARBIDOPA\LEVODOPA
     Route: 050
     Dates: start: 20211022, end: 202211
  3. FERPLEX [Concomitant]
     Indication: Anaemia
     Route: 048
     Dates: start: 20220611

REACTIONS (8)
  - Weight decreased [Not Recovered/Not Resolved]
  - Occult blood [Unknown]
  - Gastric disorder [Unknown]
  - Stoma site hypergranulation [Unknown]
  - Hypophagia [Not Recovered/Not Resolved]
  - Anaemia [Not Recovered/Not Resolved]
  - Device issue [Recovered/Resolved]
  - Breast mass [Unknown]

NARRATIVE: CASE EVENT DATE: 20211001
